FAERS Safety Report 4600634-5 (Version None)
Quarter: 2005Q1

REPORT INFORMATION
  Report Type: 
  Country: None (occurrence: None)
  Receive Date: 20050127
  Receipt Date: 20041018
  Transmission Date: 20050727
  Serious: No
  Sender: FDA-Public Use
  Company Number: USA041184067

PATIENT
  Age: 4 Year
  Sex: Male
  Weight: 16 kg

DRUGS (1)
  1. STRATTERA [Suspect]
     Indication: ATTENTION DEFICIT/HYPERACTIVITY DISORDER
     Dosage: 40 MG/TWICE DAY
     Dates: start: 20041021

REACTIONS (4)
  - LETHARGY [None]
  - PRESCRIBED OVERDOSE [None]
  - SOMNOLENCE [None]
  - URINARY INCONTINENCE [None]
